FAERS Safety Report 18843216 (Version 1)
Quarter: 2021Q1

REPORT INFORMATION
  Report Type: Spontaneous
  Country: US (occurrence: US)
  Receive Date: 20210203
  Receipt Date: 20210203
  Transmission Date: 20210419
  Serious: No
  Sender: FDA-Public Use
  Company Number: US-LUNDBECK-DKLU3025716

PATIENT
  Age: 34 Year
  Sex: Male
  Weight: 75 kg

DRUGS (1)
  1. NORTHERA [Suspect]
     Active Substance: DROXIDOPA
     Indication: ORTHOSTATIC HYPOTENSION
     Route: 048

REACTIONS (3)
  - Product dose omission issue [Unknown]
  - Hot flush [Unknown]
  - Blood pressure increased [Unknown]

NARRATIVE: CASE EVENT DATE: 202012
